FAERS Safety Report 5524464-5 (Version None)
Quarter: 2007Q4

REPORT INFORMATION
  Report Type: 
  Country: None (occurrence: None)
  Receive Date: 20071122
  Receipt Date: 20071114
  Transmission Date: 20080405
  Serious: Yes (Hospitalization, Other)
  Sender: FDA-Public Use
  Company Number: PHBS2007JP12966

PATIENT
  Age: 74 Year
  Sex: Male

DRUGS (68)
  1. DIOVAN [Suspect]
     Indication: HYPERTENSION
     Dosage: 80 MG/DAY
     Route: 048
     Dates: end: 20070803
  2. CONIEL [Concomitant]
     Indication: HYPERTENSION
     Dosage: 4MG
     Route: 048
  3. PRONON [Concomitant]
     Indication: ARRHYTHMIA
     Dosage: 300MG
     Route: 048
  4. SALOBEL [Concomitant]
     Indication: HYPERURICAEMIA
     Dosage: 100MG
     Route: 048
  5. ASPIRIN [Concomitant]
     Dosage: 100MG
     Route: 048
  6. EPADEL [Concomitant]
     Dosage: 1800MG
     Route: 048
  7. PLETAL [Concomitant]
     Dosage: 200MG
     Route: 048
  8. NICERGOLINE [Concomitant]
     Dosage: 15MG
  9. JUVELA NICOTINATE [Concomitant]
     Dosage: 300MG
  10. ADALAT [Concomitant]
     Dosage: 5MG
     Dates: start: 20070724
  11. ADALAT [Concomitant]
     Dosage: 5MG
  12. INDERAL [Concomitant]
     Dosage: 10MG
     Dates: start: 20070729
  13. INDERAL [Concomitant]
     Dosage: 10MG
  14. INDERAL [Concomitant]
     Dosage: 30MG
  15. INDERAL [Concomitant]
     Dosage: 50MG
  16. INDERAL [Concomitant]
     Dosage: 60MG
  17. ABILIFY [Concomitant]
     Dosage: 3MG
     Dates: start: 20070729
  18. ABILIFY [Concomitant]
     Dosage: 6MG
  19. ABILIFY [Concomitant]
     Dosage: 6MG
  20. SERTRALINE HYDROCHLORIDE [Concomitant]
     Dosage: 50MG
     Dates: start: 20070727
  21. SERTRALINE HYDROCHLORIDE [Concomitant]
     Dosage: 100MG
  22. DIAZEPAM [Concomitant]
     Dosage: 2MG
     Dates: start: 20070729
  23. DIAZEPAM [Concomitant]
     Dosage: 2MG
  24. DIAZEPAM [Concomitant]
     Dosage: 6MG
  25. DIAZEPAM [Concomitant]
     Dosage: 4MG
  26. DIAZEPAM [Concomitant]
     Dosage: 2MG
  27. ZYPREXA [Concomitant]
     Dosage: 5MG
     Dates: start: 20070725
  28. SEROQUEL [Concomitant]
     Dosage: 0.6G
     Dates: start: 20070723
  29. SENNOSIDE [Concomitant]
     Dosage: 24MG
     Dates: start: 20070725
  30. PAXIL [Concomitant]
     Dosage: 20MG
     Dates: start: 20070723
  31. FLUNITRAZEPAM [Concomitant]
     Dosage: 1MG
     Dates: start: 20070729
  32. MYSLEE [Concomitant]
     Dosage: 10MG
     Dates: start: 20070723
  33. TPN [Concomitant]
     Dosage: 1200ML
     Dates: start: 20070725
  34. KENEI ENEMA [Concomitant]
     Dosage: 60ML
     Dates: start: 20070726
  35. KENEI ENEMA [Concomitant]
     Dosage: 60ML
  36. ISOZOL [Concomitant]
     Dosage: 500MG
     Dates: start: 20070723
  37. ISOZOL [Concomitant]
     Dosage: 500MG
  38. ISOZOL [Concomitant]
     Dosage: 500MG
  39. ESRON [Concomitant]
     Dosage: 500ML
     Dates: start: 20070726
  40. ESRON [Concomitant]
     Dosage: 500ML
  41. DISTILLED WATER [Concomitant]
     Dosage: 100ML
     Dates: start: 20070727
  42. DISTILLED WATER [Concomitant]
     Dosage: 100ML
  43. DISTILLED WATER [Concomitant]
     Dosage: 20ML
  44. DISTILLED WATER [Concomitant]
     Dosage: 120ML
  45. DISTILLED WATER [Concomitant]
     Dosage: 120ML
  46. DISTILLED WATER [Concomitant]
     Dosage: 20ML
  47. DISTILLED WATER [Concomitant]
     Dosage: 20ML
  48. SUBVITAN N [Concomitant]
     Dosage: 1DF
     Dates: start: 20070723
  49. ISOTONIC SOLUTIONS [Concomitant]
     Dosage: 100ML
     Dates: start: 20070726
  50. ISOTONIC SOLUTIONS [Concomitant]
     Dosage: 100ML
  51. CEFMETAZOLE SODIUM [Concomitant]
     Dosage: 1G
     Dates: start: 20070726
  52. SOLDEM 3A [Concomitant]
     Dosage: 500ML
     Dates: start: 20070723
  53. DANTRIUM [Concomitant]
     Dosage: 400MG
     Dates: start: 20070726
  54. DANTRIUM [Concomitant]
     Dosage: 40MG
  55. ATROPINE SULFATE [Concomitant]
     Dosage: 0.5MG
     Dates: start: 20070723
  56. ATROPINE SULFATE [Concomitant]
     Dosage: 0.25MG
  57. ROHYPNOL [Concomitant]
     Dosage: 2MG
     Dates: start: 20070728
  58. SULPIRIDE [Concomitant]
     Dosage: 100MG
     Dates: start: 20070816
  59. SULPIRIDE [Concomitant]
     Dosage: 200MG
  60. SULPIRIDE [Concomitant]
     Dosage: 300MG
  61. TETRAMIDE [Concomitant]
     Dosage: 10MG
     Dates: start: 20070810
  62. TETRAMIDE [Concomitant]
     Dosage: 10MG
  63. DESYREL [Concomitant]
     Dosage: 25MG
     Dates: start: 20070813
  64. DESYREL [Concomitant]
     Dosage: 50MG
  65. MAGMITT KENEI [Concomitant]
     Dosage: 990MG
     Dates: start: 20070817
  66. AKINETON /SCH/ [Concomitant]
     Dosage: 5MG
     Dates: start: 20070809
  67. PROMETHAZINE [Concomitant]
     Dosage: 1DF
     Dates: start: 20070809
  68. LINTON [Concomitant]
     Dosage: 5MG
     Dates: start: 20070809

REACTIONS (11)
  - AGITATION [None]
  - ANXIETY [None]
  - BLOOD CREATINE PHOSPHOKINASE INCREASED [None]
  - DELUSION [None]
  - DEPRESSION [None]
  - HYPERTENSION [None]
  - HYPONATRAEMIA [None]
  - INAPPROPRIATE ANTIDIURETIC HORMONE SECRETION [None]
  - NEUROLEPTIC MALIGNANT SYNDROME [None]
  - SPEECH DISORDER [None]
  - URINE OUTPUT INCREASED [None]
